FAERS Safety Report 5361662-8 (Version None)
Quarter: 2007Q2

REPORT INFORMATION
  Report Type: 
  Country: None (occurrence: None)
  Receive Date: 20070615
  Receipt Date: 20070615
  Transmission Date: 20071010
  Serious: No
  Sender: FDA-Public Use
  Company Number: None

PATIENT
  Age: 49 Year
  Sex: Female
  Weight: 57.6068 kg

DRUGS (2)
  1. ZICAM GEL PUMP [Suspect]
     Indication: NASOPHARYNGITIS
     Dosage: I USED AS DIRECTED
     Dates: start: 20020706, end: 20020710
  2. ZICAM GEL PUMP [Suspect]
     Indication: NASOPHARYNGITIS
     Dosage: I USED AS DIRECTED
     Dates: start: 20020920, end: 20020920

REACTIONS (4)
  - AGEUSIA [None]
  - ANOSMIA [None]
  - HYPOGEUSIA [None]
  - RHINORRHOEA [None]
